FAERS Safety Report 12263357 (Version 1)
Quarter: 2016Q2

REPORT INFORMATION
  Report Type: Spontaneous
  Country: US (occurrence: None)
  Receive Date: 20160412
  Receipt Date: 20160412
  Transmission Date: 20160815
  Serious: Yes (Other)
  Sender: FDA-Public Use
  Company Number: None

PATIENT
  Age: 67 Year
  Sex: Male
  Weight: 97.98 kg

DRUGS (11)
  1. ECHINACEA [Concomitant]
     Active Substance: ECHINACEA, UNSPECIFIED
  2. VITAMIN D3 [Concomitant]
     Active Substance: CHOLECALCIFEROL
  3. HUMIRA [Suspect]
     Active Substance: ADALIMUMAB
     Indication: RHEUMATOID ARTHRITIS
     Dosage: 5 INJECTION(S) 2 WEEKS GIVEN INTO/UNDER THE SKIN
     Route: 058
     Dates: start: 20160108, end: 20160308
  4. METHOTREXATE [Concomitant]
     Active Substance: METHOTREXATE
  5. PREGABALIN. [Concomitant]
     Active Substance: PREGABALIN
  6. NABUMETONE. [Concomitant]
     Active Substance: NABUMETONE
  7. LORTAB [Concomitant]
     Active Substance: ACETAMINOPHEN\HYDROCODONE BITARTRATE
  8. VITAMIN B COMPLEX [Concomitant]
     Active Substance: CYANOCOBALAMIN\DEXPANTHENOL\NIACINAMIDE\PYRIDOXINE HYDROCHLORIDE\RIBOFLAVIN 5^-PHOSPHATE SODIUM\THIAMINE HYDROCHLORIDE\VITAMIN B COMPLEX
  9. FOLIC ACID. [Concomitant]
     Active Substance: FOLIC ACID
  10. ESTER C [Concomitant]
  11. LANSOPRAZOLE. [Concomitant]
     Active Substance: LANSOPRAZOLE

REACTIONS (3)
  - Myalgia [None]
  - Muscular weakness [None]
  - Visual impairment [None]

NARRATIVE: CASE EVENT DATE: 20160205
